FAERS Safety Report 15893413 (Version 1)
Quarter: 2019Q1

REPORT INFORMATION
  Report Type: Spontaneous
  Country: FR (occurrence: FR)
  Receive Date: 20190130
  Receipt Date: 20190130
  Transmission Date: 20190417
  Serious: Yes (Hospitalization)
  Sender: FDA-Public Use
  Company Number: FR-SUN PHARMACEUTICAL INDUSTRIES LTD-2019RR-197385

PATIENT
  Sex: Male
  Weight: 101 kg

DRUGS (1)
  1. TRAMADOL. [Suspect]
     Active Substance: TRAMADOL
     Indication: BACK PAIN
     Dosage: 900 MILLIGRAM, QD
     Route: 048
     Dates: start: 201401, end: 20171224

REACTIONS (2)
  - Epilepsy [Recovered/Resolved]
  - Dependence [Recovering/Resolving]

NARRATIVE: CASE EVENT DATE: 201402
